FAERS Safety Report 6378778-X (Version None)
Quarter: 2009Q3

REPORT INFORMATION
  Report Type: 
  Country: None (occurrence: None)
  Receive Date: 20090928
  Receipt Date: 20090605
  Transmission Date: 20100115
  Serious: Yes (Other)
  Sender: FDA-Public Use
  Company Number: BR-PFIZER INC-2009223952

PATIENT
  Age: 54 Year

DRUGS (19)
  1. XALATAN [Suspect]
     Indication: GLAUCOMA
     Dosage: 3 UG, 1X/DAY
     Route: 047
  2. TIMOPTIC [Suspect]
  3. GANFORT [Suspect]
     Dosage: UNK
     Dates: start: 20090401
  4. AZOPT [Suspect]
     Dosage: UNK
     Dates: start: 20090401
  5. TIMOLOL MALEATE/TRAVOPROST [Suspect]
  6. ALPHAGAN [Suspect]
     Dosage: UNK
  7. GLUCOFORMIN [Concomitant]
     Indication: DIABETES MELLITUS
     Dosage: UNK
  8. HYZAAR [Concomitant]
     Indication: HYPERTENSION
     Dosage: UNK
  9. LASIX [Concomitant]
     Indication: DIURETIC THERAPY
     Dosage: UNK
     Dates: end: 20090401
  10. COLLAGEN [Concomitant]
     Indication: ENERGY INCREASED
     Dosage: UNK
  11. VITAMIN A [Concomitant]
     Indication: ENERGY INCREASED
     Dosage: UNK
  12. VITAMIN E [Concomitant]
     Indication: ENERGY INCREASED
     Dosage: UNK
  13. CALCIUM [Concomitant]
     Indication: ENERGY INCREASED
     Dosage: UNK
  14. CENTRUM [Concomitant]
     Indication: ENERGY INCREASED
     Dosage: UNK
  15. MAGNESIUM [Concomitant]
     Indication: ENERGY INCREASED
     Dosage: UNK
  16. LINSEED OIL [Concomitant]
     Indication: ENERGY INCREASED
     Dosage: UNK
  17. DIAMOX [Concomitant]
     Dosage: UNK
     Dates: start: 20090401
  18. VITAMIN B-12 [Concomitant]
     Indication: MEMORY IMPAIRMENT
     Dosage: UNK
     Dates: start: 20070101
  19. TRAVATAN [Concomitant]

REACTIONS (13)
  - CATARACT [None]
  - DRY EYE [None]
  - EYE IRRITATION [None]
  - EYE SWELLING [None]
  - INTRAOCULAR PRESSURE INCREASED [None]
  - KERATITIS [None]
  - KERATORHEXIS [None]
  - LACRIMATION INCREASED [None]
  - MEMORY IMPAIRMENT [None]
  - MENOPAUSE [None]
  - OCULAR HYPERAEMIA [None]
  - POLLAKIURIA [None]
  - VISUAL ACUITY REDUCED [None]
